FAERS Safety Report 6169405-5 (Version None)
Quarter: 2009Q2

REPORT INFORMATION
  Report Type: 
  Country: None (occurrence: None)
  Receive Date: 20090424
  Receipt Date: 20090408
  Transmission Date: 20091009
  Serious: Yes (Hospitalization)
  Sender: FDA-Public Use
  Company Number: 1000005843

PATIENT
  Age: 76 Year
  Sex: Male

DRUGS (10)
  1. NEBIVOLOL HCL [Suspect]
     Indication: HYPERTENSION
     Dosage: 5 MG (5 MG,1 IN 1 D),ORAL ; DOSE DECREASED (1 IN 1 D),ORAL
     Route: 048
     Dates: start: 20090312
  2. ESCITALOPRAM [Suspect]
     Indication: DRUG USE FOR UNKNOWN INDICATION
     Dosage: 20 MG (20 MG,1 IN 1 D),ORAL
     Route: 048
  3. FUROSEMIDE [Suspect]
     Indication: HYPERTENSION
     Dosage: 20 MG (20 MG,1 IN 1 D),ORAL
     Route: 048
  4. ODRIK [Suspect]
     Indication: HYPERTENSION
     Dosage: 2 MG (2 MG, 1 IN 1 D),ORAL
     Route: 048
  5. TRAMADOL HCL [Suspect]
     Indication: DRUG USE FOR UNKNOWN INDICATION
     Dosage: ORAL
     Route: 048
  6. DIFFU K (TABLETS) [Concomitant]
  7. ASPEGIC 1000 [Concomitant]
  8. CRESTOR [Concomitant]
  9. PREVISCAN (TABLETS) [Concomitant]
  10. FORLAX [Concomitant]

REACTIONS (22)
  - AGITATION [None]
  - AMYOTROPHY [None]
  - ANOREXIA [None]
  - ASTHENIA [None]
  - BALANCE DISORDER [None]
  - BILIARY TRACT DISORDER [None]
  - DEHYDRATION [None]
  - DYSURIA [None]
  - EXTENSOR PLANTAR RESPONSE [None]
  - FALL [None]
  - GENERAL PHYSICAL HEALTH DETERIORATION [None]
  - HUMERUS FRACTURE [None]
  - HYPOTENSION [None]
  - JUGULAR VEIN DISTENSION [None]
  - MALAISE [None]
  - MEMORY IMPAIRMENT [None]
  - NERVOUS SYSTEM DISORDER [None]
  - ORTHOSTATIC HYPOTENSION [None]
  - TREMOR [None]
  - URINARY INCONTINENCE [None]
  - URINARY RETENTION [None]
  - URINARY TRACT DISORDER [None]
